FAERS Safety Report 19491038 (Version 4)
Quarter: 2022Q1

REPORT INFORMATION
  Report Type: Report from Study
  Country: CA (occurrence: CA)
  Receive Date: 20210705
  Receipt Date: 20220207
  Transmission Date: 20220423
  Serious: Yes (Other)
  Sender: FDA-Public Use
  Company Number: CA-JNJFOC-20210508085

PATIENT
  Age: 4 Decade
  Sex: Female

DRUGS (2)
  1. REMICADE [Suspect]
     Active Substance: INFLIXIMAB
     Indication: Crohn^s disease
     Dosage: INFUSION RECEIVED ON 01-APR-2021
     Route: 042
     Dates: start: 20191105
  2. REMICADE [Suspect]
     Active Substance: INFLIXIMAB
     Route: 042
     Dates: start: 20210504

REACTIONS (12)
  - Ileostomy [Unknown]
  - Skin disorder [Not Recovered/Not Resolved]
  - Stoma site infection [Unknown]
  - Stoma site pain [Not Recovered/Not Resolved]
  - Stoma site extravasation [Not Recovered/Not Resolved]
  - Device allergy [Unknown]
  - Stoma site irritation [Unknown]
  - Fungal infection [Unknown]
  - Treatment noncompliance [Unknown]
  - Off label use [Unknown]
  - Incorrect drug administration rate [Unknown]
  - Blood potassium increased [Unknown]

NARRATIVE: CASE EVENT DATE: 20210601
